FAERS Safety Report 26169802 (Version 1)
Quarter: 2025Q4

REPORT INFORMATION
  Report Type: Report from Study
  Country: US (occurrence: US)
  Receive Date: 20251217
  Receipt Date: 20251217
  Transmission Date: 20260117
  Serious: Yes (Hospitalization)
  Sender: JAZZ
  Company Number: US-JAZZ PHARMACEUTICALS-2025-US-028727

PATIENT
  Sex: Female
  Weight: 63.5 kg

DRUGS (1)
  1. EPIDIOLEX [Suspect]
     Active Substance: CANNABIDIOL
     Indication: Idiopathic generalised epilepsy
     Dosage: 10 MILLILITER (1000 MILLIGRAM), BID

REACTIONS (2)
  - Hospitalisation [Unknown]
  - Off label use [Unknown]
